FAERS Safety Report 13560119 (Version 1)
Quarter: 2017Q2

REPORT INFORMATION
  Report Type: Spontaneous
  Country: US (occurrence: US)
  Receive Date: 20170518
  Receipt Date: 20170518
  Transmission Date: 20170830
  Serious: No
  Sender: FDA-Public Use
  Company Number: US-MYLANLABS-2016M1047187

PATIENT
  Age: 29 Year
  Sex: Female
  Weight: 81.63 kg

DRUGS (2)
  1. ZOVIRAX [Suspect]
     Active Substance: ACYCLOVIR
     Dosage: 400 MG, QD
     Route: 048
     Dates: start: 20140602, end: 20140604
  2. ZOVIRAX [Suspect]
     Active Substance: ACYCLOVIR
     Indication: HERPES VIRUS INFECTION
     Dosage: 400 MG, BID
     Route: 048
     Dates: start: 20140530, end: 20140602

REACTIONS (2)
  - Exposure during pregnancy [Unknown]
  - Intentional underdose [Unknown]

NARRATIVE: CASE EVENT DATE: 20140530
